FAERS Safety Report 16053194 (Version 1)
Quarter: 2019Q1

REPORT INFORMATION
  Report Type: Spontaneous
  Country: US (occurrence: US)
  Receive Date: 20190308
  Receipt Date: 20190308
  Transmission Date: 20190418
  Serious: No
  Sender: FDA-Public Use
  Company Number: US-MERZ NORTH AMERICA, INC.-19MRZ-00095

PATIENT

DRUGS (1)
  1. XEOMIN [Suspect]
     Active Substance: INCOBOTULINUMTOXINA
     Indication: PRODUCT USED FOR UNKNOWN INDICATION
     Dosage: APPROXIMATELY AT 2 WEEKS POST INJECTION (FEB 2019)
     Dates: start: 201902, end: 201902

REACTIONS (1)
  - Swelling of eyelid [Unknown]

NARRATIVE: CASE EVENT DATE: 2019
